FAERS Safety Report 9080213 (Version 6)
Quarter: 2013Q2

REPORT INFORMATION
  Report Type: Spontaneous
  Country: JP (occurrence: JP)
  Receive Date: 20130130
  Receipt Date: 20130607
  Transmission Date: 20140414
  Serious: Yes (Life-Threatening)
  Sender: FDA-Public Use
  Company Number: JP-JHP PHARMACEUTICALS, LLC-JHP201300038

PATIENT
  Age: 60 Year
  Sex: Male
  Weight: 60 kg

DRUGS (12)
  1. DANTRIUM [Suspect]
     Indication: SPINAL LIGAMENT OSSIFICATION
     Dosage: 25 MG, DAILY
     Route: 048
     Dates: start: 20120903, end: 20121221
  2. MYSLEE [Suspect]
     Indication: INSOMNIA
     Dosage: 5 MG, QD
     Route: 048
     Dates: start: 20120816, end: 20121206
  3. LYRICA [Suspect]
     Indication: CONSTIPATION
     Dosage: 25 MG, BID
     Route: 048
     Dates: start: 20121016, end: 20121221
  4. LYRICA [Suspect]
     Indication: PROCTALGIA
  5. SHAKUYAKUKANZOTO [Suspect]
     Indication: SPINAL LIGAMENT OSSIFICATION
     Dosage: 2.5 G, QD
     Route: 048
     Dates: start: 20121112, end: 20121221
  6. HERBAL NOS [Suspect]
     Indication: CONSTIPATION
     Dosage: 2.5 G, TID
     Route: 048
     Dates: start: 20121016, end: 20121221
  7. HERBAL NOS [Suspect]
     Indication: PROCTALGIA
  8. LENDORMIN [Suspect]
     Indication: INSOMNIA
     Dosage: 0.25 MG, QD
     Route: 048
     Dates: start: 20121207, end: 20121209
  9. MEILAX [Suspect]
     Indication: INSOMNIA
     Dosage: 1 MG, QD
     Route: 048
     Dates: start: 20121213, end: 20121221
  10. RIVOTRIL [Suspect]
     Indication: INSOMNIA
     Dosage: 0.5 MG, QD
     Route: 048
     Dates: start: 20121217, end: 20121219
  11. RISPERDAL [Concomitant]
     Indication: INSOMNIA
     Dosage: UNK
     Route: 048
     Dates: start: 20121210, end: 20121212
  12. BENZALIN [Concomitant]
     Indication: INSOMNIA
     Dosage: UNK
     Route: 048
     Dates: start: 20121210, end: 20121212

REACTIONS (2)
  - Interstitial lung disease [Recovering/Resolving]
  - Off label use [Unknown]
